FAERS Safety Report 24718867 (Version 1)
Quarter: 2024Q4

REPORT INFORMATION
  Report Type: Spontaneous
  Country: US (occurrence: None)
  Receive Date: 20241210
  Receipt Date: 20241210
  Transmission Date: 20250115
  Serious: Yes (Life-Threatening, Hospitalization, Disabling)
  Sender: Public
  Company Number: None

PATIENT
  Age: 45 Year
  Sex: Female
  Weight: 49.5 kg

DRUGS (9)
  1. INJECTAFER [Suspect]
     Active Substance: FERRIC CARBOXYMALTOSE
     Indication: Iron deficiency anaemia
     Dosage: OTHER QUANTITY : 2 2;?OTHER FREQUENCY : 2 DOSES OF IV IRON;?
     Route: 042
     Dates: start: 20240927, end: 20241004
  2. STELARA [Concomitant]
     Active Substance: USTEKINUMAB
  3. XANAX [Concomitant]
     Active Substance: ALPRAZOLAM
  4. HYDROXYZINE HYDROCHLORIDE [Concomitant]
     Active Substance: HYDROXYZINE HYDROCHLORIDE
  5. aderal [Concomitant]
  6. K phos [Concomitant]
  7. CALCITRIOL [Concomitant]
     Active Substance: CALCITRIOL
  8. MAGNESIUM [Concomitant]
     Active Substance: MAGNESIUM
  9. VITAMINS [Concomitant]
     Active Substance: VITAMINS

REACTIONS (8)
  - Cognitive disorder [None]
  - Anxiety [None]
  - Palpitations [None]
  - Muscular weakness [None]
  - Bone pain [None]
  - Myalgia [None]
  - Hypophosphataemia [None]
  - Malaise [None]

NARRATIVE: CASE EVENT DATE: 20240930
